FAERS Safety Report 6999192-X (Version None)
Quarter: 2010Q3

REPORT INFORMATION
  Report Type: 
  Country: None (occurrence: None)
  Receive Date: 20100920
  Receipt Date: 20100415
  Transmission Date: 20110219
  Serious: No
  Sender: FDA-Public Use
  Company Number: US-ASTRAZENECA-2010SE16798

PATIENT
  Age: 48 Year
  Sex: Female
  Weight: 124.7 kg

DRUGS (3)
  1. SEROQUEL XR [Suspect]
     Indication: HALLUCINATION
     Route: 048
     Dates: start: 20080301, end: 20090301
  2. SEROQUEL XR [Suspect]
     Route: 048
  3. SEROQUEL XR [Suspect]
     Route: 048
     Dates: start: 20090301

REACTIONS (3)
  - HYPOTHYROIDISM [None]
  - INTENTIONAL DRUG MISUSE [None]
  - WEIGHT INCREASED [None]
